FAERS Safety Report 14437080 (Version 1)
Quarter: 2018Q1

REPORT INFORMATION
  Report Type: Spontaneous
  Country: DE (occurrence: DE)
  Receive Date: 20180125
  Receipt Date: 20180125
  Transmission Date: 20180509
  Serious: Yes (Congenital Anomaly)
  Sender: FDA-Public Use
  Company Number: DE-SUN PHARMACEUTICAL INDUSTRIES LTD-2018RR-161560

PATIENT
  Age: 1 Day
  Sex: Female
  Weight: 4.12 kg

DRUGS (9)
  1. DIMENHYDRINATE. [Concomitant]
     Active Substance: DIMENHYDRINATE
     Indication: VOMITING IN PREGNANCY
     Dosage: 50 [MG/D ]/ TAKEN ON THREE OCCASIONS/DAYS WITHIN THAT TIME FRAME ()
     Route: 064
     Dates: start: 20161202, end: 20170401
  2. TEARS AGAIN AUGENSPRAY (MP) [Concomitant]
     Indication: SJOGREN^S SYNDROME
     Dosage: UNK
     Route: 064
     Dates: start: 20161021, end: 20170721
  3. L-THYROXIN [Concomitant]
     Active Substance: LEVOTHYROXINE SODIUM
     Indication: HYPOTHYROIDISM
     Dosage: 50 [?G/D ]
     Route: 064
     Dates: start: 20161020, end: 20170721
  4. PANTOPRAZOLE [Suspect]
     Active Substance: PANTOPRAZOLE
     Indication: GASTRITIS
     Dosage: 80 [MG/D ]
     Route: 064
  5. PROGESTAN [Concomitant]
     Active Substance: PROGESTERONE
     Indication: PROPHYLAXIS OF ABORTION
     Dosage: 200 [MG/D ]/ IN THE BEGINNING ORALLY
     Route: 064
     Dates: start: 20161121, end: 20170119
  6. ASPIRIN. [Concomitant]
     Active Substance: ASPIRIN
     Indication: PROPHYLAXIS OF ABORTION
     Dosage: 100 [MG/D ]
     Route: 064
     Dates: start: 20161121, end: 20170615
  7. FOLSAEURE [Concomitant]
     Active Substance: FOLIC ACID
     Indication: PROPHYLAXIS OF NEURAL TUBE DEFECT
     Dosage: 0.4 [MG/D ]
     Route: 064
     Dates: start: 20161021, end: 20170721
  8. ONDANSETRON [Concomitant]
     Active Substance: ONDANSETRON
     Indication: VOMITING IN PREGNANCY
     Dosage: 8 [MG/D ]/ TAKEN ON THREE OCCASIONS/DAYS WITHIN THAT TIME FRAME ()
     Route: 064
     Dates: start: 20161215, end: 20170401
  9. OMEPRAZOL [Concomitant]
     Active Substance: OMEPRAZOLE
     Indication: GASTRITIS
     Dosage: 40 [MG/D ]
     Route: 064
     Dates: start: 20161206, end: 20161214

REACTIONS (3)
  - Atrial septal defect [Not Recovered/Not Resolved]
  - Large for dates baby [Recovering/Resolving]
  - Developmental hip dysplasia [Recovered/Resolved]

NARRATIVE: CASE EVENT DATE: 20170721
